FAERS Safety Report 25750802 (Version 2)
Quarter: 2025Q3

REPORT INFORMATION
  Report Type: Report from Study
  Country: US (occurrence: US)
  Receive Date: 20250902
  Receipt Date: 20250925
  Transmission Date: 20251021
  Serious: No
  Sender: SUNOVION
  Company Number: US-SUMITOMO PHARMA SWITZERLAND GMBH-2025SPA010986

PATIENT
  Age: 76 Year
  Sex: Male

DRUGS (18)
  1. ORGOVYX [Suspect]
     Active Substance: RELUGOLIX
     Indication: Prostate cancer
     Route: 048
     Dates: start: 20250819, end: 20250819
  2. ORGOVYX [Suspect]
     Active Substance: RELUGOLIX
     Route: 048
  3. ACETAMINOPHEN [Concomitant]
     Active Substance: ACETAMINOPHEN
  4. AMPHETAMINE SULFATE [Concomitant]
     Active Substance: AMPHETAMINE SULFATE
  5. ATORVASTATIN [Concomitant]
     Active Substance: ATORVASTATIN
  6. Azo D-mannose [Concomitant]
  7. ZINC [Concomitant]
     Active Substance: ZINC
  8. BLACK PEPPER [Concomitant]
     Active Substance: BLACK PEPPER
  9. HERBALS\TURMERIC [Concomitant]
     Active Substance: HERBALS\TURMERIC
  10. MAGNESIUM [Concomitant]
     Active Substance: MAGNESIUM
  11. MELATONIN [Concomitant]
     Active Substance: MELATONIN
  12. dilTIAZem HCl ER Beads [Concomitant]
  13. FUROSEMIDE [Concomitant]
     Active Substance: FUROSEMIDE
  14. LOSARTAN [Concomitant]
     Active Substance: LOSARTAN
  15. METFORMIN [Concomitant]
     Active Substance: METFORMIN HYDROCHLORIDE
  16. PYRIDOXINE [Concomitant]
     Active Substance: PYRIDOXINE
  17. QUETIAPINE FUMARATE [Concomitant]
     Active Substance: QUETIAPINE FUMARATE
  18. OXYBUTYNIN [Concomitant]
     Active Substance: OXYBUTYNIN

REACTIONS (7)
  - Neuropathy peripheral [Unknown]
  - Dry mouth [Unknown]
  - Condition aggravated [Unknown]
  - Dysgeusia [Unknown]
  - Peripheral swelling [Unknown]
  - Asthenia [Unknown]
  - Fatigue [Unknown]
